FAERS Safety Report 21518326 (Version 1)
Quarter: 2022Q4

REPORT INFORMATION
  Report Type: Report from Study
  Country: US (occurrence: US)
  Receive Date: 20221028
  Receipt Date: 20221028
  Transmission Date: 20230113
  Serious: Yes (Other)
  Sender: FDA-Public Use
  Company Number: US-ABBVIE-4176996

PATIENT
  Age: 48 Year
  Sex: Female

DRUGS (1)
  1. HUMIRA [Suspect]
     Active Substance: ADALIMUMAB
     Indication: Rheumatoid arthritis
     Route: 058

REACTIONS (6)
  - Deep vein thrombosis [Unknown]
  - Pulmonary embolism [Unknown]
  - Red blood cell sedimentation rate increased [Unknown]
  - Chronic respiratory disease [Unknown]
  - Inflammation [Unknown]
  - Infection [Unknown]

NARRATIVE: CASE EVENT DATE: 20221017
